FAERS Safety Report 6062304-9 (Version None)
Quarter: 2009Q1

REPORT INFORMATION
  Report Type: 
  Country: None (occurrence: None)
  Receive Date: 20090129
  Receipt Date: 20090122
  Transmission Date: 20090719
  Serious: Yes (Other)
  Sender: FDA-Public Use
  Company Number: MSTR-NO-0804S-0014

PATIENT
  Age: 69 Year
  Sex: Female
  Weight: 44.6 kg

DRUGS (3)
  1. METASTRON [Suspect]
     Indication: METASTATIC PAIN
     Dosage: NR, SINGLE DOSE
     Dates: start: 20080208, end: 20080208
  2. FENTANYL-75 [Concomitant]
  3. CLOMIPRAMINE HYDROCHLORIDE [Concomitant]

REACTIONS (8)
  - ANAEMIA [None]
  - BLOOD ALBUMIN DECREASED [None]
  - DISSEMINATED INTRAVASCULAR COAGULATION [None]
  - INTRA-ABDOMINAL HAEMORRHAGE [None]
  - OEDEMA [None]
  - PLEURAL EFFUSION [None]
  - PROTEIN TOTAL DECREASED [None]
  - SOMNOLENCE [None]
